FAERS Safety Report 7422828-6 (Version None)
Quarter: 2011Q2

REPORT INFORMATION
  Report Type: 
  Country: None (occurrence: None)
  Receive Date: 20110419
  Receipt Date: 20100304
  Transmission Date: 20111010
  Serious: Yes (Death, Other)
  Sender: FDA-Public Use
  Company Number: US-BAYER-201015306NA

PATIENT
  Age: 75 Year
  Sex: Female
  Weight: 75.737 kg

DRUGS (8)
  1. TRASYLOL [Suspect]
     Indication: CORONARY ARTERY BYPASS
     Dates: start: 20020422
  2. SYNTHROID [Concomitant]
  3. LASIX [Concomitant]
     Indication: SWELLING
  4. LASIX [Concomitant]
     Indication: FLUID RETENTION
  5. COREG [Concomitant]
     Indication: HYPERTENSION
  6. ACETYLSALICYLIC ACID SRT [Concomitant]
  7. CONTRAST MEDIA [Concomitant]
     Indication: CATHETERISATION CARDIAC
     Dosage: UNK
     Dates: start: 20020422
  8. INSULIN [Concomitant]

REACTIONS (5)
  - INJURY [None]
  - RENAL FAILURE [None]
  - DEATH [None]
  - RENAL FAILURE ACUTE [None]
  - PAIN [None]
